FAERS Safety Report 9785934 (Version 1)
Quarter: 2013Q4

REPORT INFORMATION
  Report Type: Spontaneous
  Country: US (occurrence: US)
  Receive Date: 20131227
  Receipt Date: 20131227
  Transmission Date: 20140711
  Serious: No
  Sender: FDA-Public Use
  Company Number: US-PFIZER INC-2013368111

PATIENT
  Sex: Female

DRUGS (5)
  1. ADVIL [Suspect]
     Indication: ROTATOR CUFF SYNDROME
     Dosage: 200 MG, THREE TIMES A DAY
     Route: 048
     Dates: start: 201312, end: 20131222
  2. ADVIL [Suspect]
     Indication: PAIN IN EXTREMITY
  3. ADVIL [Suspect]
     Indication: MUSCULOSKELETAL PAIN
  4. MICARDIS [Concomitant]
     Indication: HYPERTENSION
     Dosage: UNK
  5. VERAPAMIL [Concomitant]
     Indication: HYPERTENSION
     Dosage: UNK

REACTIONS (2)
  - Local swelling [Unknown]
  - Rash [Unknown]
